FAERS Safety Report 8376859-2 (Version None)
Quarter: 2012Q2

REPORT INFORMATION
  Report Type: 
  Country: None (occurrence: None)
  Receive Date: 20120522
  Receipt Date: 20120517
  Transmission Date: 20120825
  Serious: Yes (Life-Threatening)
  Sender: FDA-Public Use
  Company Number: IT-PFIZER INC-2012120744

PATIENT
  Sex: Male

DRUGS (2)
  1. DOXORUBICIN HCL [Suspect]
     Dosage: UNK
  2. VINCRISTINE SULFATE [Suspect]
     Dosage: UNK

REACTIONS (1)
  - ORGANISING PNEUMONIA [None]
